FAERS Safety Report 12157312 (Version 1)
Quarter: 2016Q1

REPORT INFORMATION
  Report Type: Spontaneous
  Country: US (occurrence: US)
  Receive Date: 20160308
  Receipt Date: 20160308
  Transmission Date: 20160526
  Serious: No
  Sender: FDA-Public Use
  Company Number: US-009507513-1602USA012239

PATIENT
  Sex: Female

DRUGS (1)
  1. ASMANEX [Suspect]
     Active Substance: MOMETASONE FUROATE
     Dosage: 220 MCG 2 PUFFS TWICE DAILY
     Route: 055
     Dates: start: 20160216

REACTIONS (2)
  - Adverse event [Unknown]
  - Product quality issue [Unknown]

NARRATIVE: CASE EVENT DATE: 201602
